FAERS Safety Report 16483763 (Version 1)
Quarter: 2019Q2

REPORT INFORMATION
  Report Type: Spontaneous
  Country: JP (occurrence: JP)
  Receive Date: 20190627
  Receipt Date: 20190627
  Transmission Date: 20190711
  Serious: Yes (Other)
  Sender: FDA-Public Use
  Company Number: JP-MYLANLABS-2019M1060146

PATIENT

DRUGS (2)
  1. VERAPAMIL [Suspect]
     Active Substance: VERAPAMIL HYDROCHLORIDE
     Indication: HEADACHE
     Dosage: 1 DOSAGE FORM
     Route: 048
     Dates: start: 20190612
  2. TRYPTANOL                          /00002202/ [Concomitant]
     Active Substance: AMITRIPTYLINE
     Indication: HEADACHE
     Dosage: UNK
     Route: 048
     Dates: start: 20190612

REACTIONS (8)
  - Dyspnoea [Unknown]
  - Dizziness [Unknown]
  - Headache [Unknown]
  - Angina pectoris [Unknown]
  - Tachycardia [Unknown]
  - Nausea [Unknown]
  - Off label use [Unknown]
  - Feeling abnormal [Unknown]

NARRATIVE: CASE EVENT DATE: 20190612
